FAERS Safety Report 6807750-8 (Version None)
Quarter: 2010Q2

REPORT INFORMATION
  Report Type: 
  Country: None (occurrence: None)
  Receive Date: 20100629
  Receipt Date: 20081220
  Transmission Date: 20101027
  Serious: No
  Sender: FDA-Public Use
  Company Number: US-PFIZER INC-2008159142

PATIENT
  Age: 42 Year
  Sex: Male
  Weight: 84.8 kg

DRUGS (1)
  1. VIAGRA [Suspect]
     Dates: start: 20081201

REACTIONS (2)
  - EJACULATION FAILURE [None]
  - ERECTION INCREASED [None]
